FAERS Safety Report 9351222 (Version 2)
Quarter: 2013Q3

REPORT INFORMATION
  Report Type: Spontaneous
  Country: US (occurrence: US)
  Receive Date: 20130617
  Receipt Date: 20130729
  Transmission Date: 20140515
  Serious: Yes (Disabling, Other)
  Sender: FDA-Public Use
  Company Number: US-PFIZER INC-2013179878

PATIENT
  Age: 40 Year
  Sex: Female
  Weight: 68.03 kg

DRUGS (23)
  1. LYRICA [Suspect]
     Indication: FIBROMYALGIA
     Dosage: 150MG DAILY
     Dates: start: 200902, end: 2009
  2. LYRICA [Suspect]
     Dosage: 150 MG, 2X/DAY
     Dates: start: 2009, end: 2009
  3. LYRICA [Suspect]
     Dosage: 150 MG, 3X/DAY
     Dates: start: 2009, end: 2009
  4. LYRICA [Suspect]
     Dosage: 300MG AT NIGHT AND 150MG IN MORNING
     Dates: start: 2009, end: 2009
  5. LYRICA [Suspect]
     Dosage: 300 MG, 2X/DAY
     Dates: start: 2009
  6. EFFEXOR XR [Suspect]
     Indication: DEPRESSION
     Dosage: UNK
     Dates: start: 1998
  7. EFFEXOR XR [Suspect]
     Indication: OBSESSIVE-COMPULSIVE DISORDER
  8. EFFEXOR XR [Suspect]
     Indication: BIPOLAR DISORDER
  9. EFFEXOR XR [Suspect]
     Indication: ANXIETY
  10. EFFEXOR [Suspect]
     Indication: DEPRESSION
     Dosage: UNK
     Dates: start: 1998
  11. EFFEXOR [Suspect]
     Indication: OBSESSIVE-COMPULSIVE DISORDER
  12. EFFEXOR [Suspect]
     Indication: BIPOLAR DISORDER
  13. EFFEXOR [Suspect]
     Indication: ANXIETY
  14. PAXIL [Suspect]
     Indication: DEPRESSION
     Dosage: UNK
     Dates: start: 1998
  15. PAXIL [Suspect]
     Indication: OBSESSIVE-COMPULSIVE DISORDER
  16. PAXIL [Suspect]
     Indication: BIPOLAR DISORDER
  17. PAXIL [Suspect]
     Indication: ANXIETY
  18. PROZAC [Suspect]
     Indication: DEPRESSION
     Dosage: UNK
     Dates: start: 1998
  19. PROZAC [Suspect]
     Indication: OBSESSIVE-COMPULSIVE DISORDER
  20. PROZAC [Suspect]
     Indication: BIPOLAR DISORDER
  21. PROZAC [Suspect]
     Indication: ANXIETY
  22. VALIUM [Suspect]
     Indication: MALIGNANT HYPERTENSION
     Dosage: 5 MG, 2X/DAY
     Dates: start: 2004
  23. VALIUM [Suspect]
     Indication: STRESS

REACTIONS (9)
  - Off label use [Unknown]
  - Intervertebral disc protrusion [Unknown]
  - Malignant hypertension [Unknown]
  - Road traffic accident [Unknown]
  - Dizziness [Recovered/Resolved]
  - Somnolence [Recovered/Resolved]
  - Euphoric mood [Unknown]
  - Therapeutic response unexpected [Unknown]
  - Migraine [Unknown]
